FAERS Safety Report 20471071 (Version 1)
Quarter: 2022Q1

REPORT INFORMATION
  Report Type: Report from Study
  Country: FR (occurrence: FR)
  Receive Date: 20220214
  Receipt Date: 20220214
  Transmission Date: 20220423
  Serious: Yes (Death, Hospitalization, Other)
  Sender: FDA-Public Use
  Company Number: FR-JAZZ-2018-FR-007228

PATIENT
  Age: 46 Year
  Sex: Female

DRUGS (9)
  1. OXYCODONE HYDROCHLORIDE [Suspect]
     Active Substance: OXYCODONE HYDROCHLORIDE
     Indication: Product used for unknown indication
     Dosage: 50 MG, DAILY (50 MG, QD)
     Route: 042
     Dates: start: 20150422, end: 20150422
  2. MIDAZOLAM [Suspect]
     Active Substance: MIDAZOLAM
     Indication: Palliative care
     Dosage: 1 MG, DAILY (1 MG, QD)
     Route: 042
     Dates: start: 20150427, end: 20150430
  3. TRAMADOL [Suspect]
     Active Substance: TRAMADOL
     Indication: Analgesic therapy
     Dosage: 100 MG, DAILY (100 MG, QD)
     Route: 042
     Dates: start: 20150421, end: 20150422
  4. TRIMEBUTINE [Suspect]
     Active Substance: TRIMEBUTINE
     Indication: Pain
     Dosage: 50 MG, DAILY (50 MG, QD)
     Route: 042
     Dates: start: 20150422
  5. PHLOROGLUCINOL [Suspect]
     Active Substance: PHLOROGLUCINOL
     Indication: Product used for unknown indication
     Dosage: 40 MG, DAILY (40 MG, QD)
     Route: 042
     Dates: start: 20150222
  6. METHYLPREDNISOLONE [Suspect]
     Active Substance: METHYLPREDNISOLONE
     Indication: Antiinflammatory therapy
     Dosage: 120 MG, DAILY (120 MG, QD)
     Route: 042
     Dates: start: 20150421
  7. ALIZAPRIDE HYDROCHLORIDE [Suspect]
     Active Substance: ALIZAPRIDE HYDROCHLORIDE
     Indication: Vomiting
     Dosage: 150 MG, DAILY (150 MG, QD)
     Route: 042
     Dates: start: 20150222
  8. DEFITELIO [Suspect]
     Active Substance: DEFIBROTIDE SODIUM
     Indication: Prophylaxis
     Dosage: 25 MG/KG, DAILY (25 MG/KG, QD)
     Route: 042
     Dates: start: 20141228, end: 20150114
  9. EUPANTOL [Suspect]
     Active Substance: PANTOPRAZOLE SODIUM
     Indication: Gastric disorder
     Dosage: 80 MG, DAILY (80 MG, QD)
     Route: 042
     Dates: start: 20150222

REACTIONS (4)
  - Graft versus host disease [Fatal]
  - Acute myeloid leukaemia recurrent [Fatal]
  - Escherichia infection [Unknown]
  - Off label use [Unknown]

NARRATIVE: CASE EVENT DATE: 20150220
